FAERS Safety Report 21646120 (Version 7)
Quarter: 2025Q2

REPORT INFORMATION
  Report Type: Spontaneous
  Country: ES (occurrence: ES)
  Receive Date: 20221126
  Receipt Date: 20250531
  Transmission Date: 20250716
  Serious: Yes (Hospitalization, Other)
  Sender: CELLTRION
  Company Number: ES-CELLTRION INC.-2022ES019889

PATIENT

DRUGS (144)
  1. RITUXIMAB [Suspect]
     Active Substance: RITUXIMAB
     Indication: Diffuse large B-cell lymphoma
     Route: 041
     Dates: start: 20220720
  2. RITUXIMAB [Suspect]
     Active Substance: RITUXIMAB
     Indication: Diffuse large B-cell lymphoma stage IV
     Route: 041
  3. RITUXIMAB [Suspect]
     Active Substance: RITUXIMAB
     Route: 041
  4. RITUXIMAB [Suspect]
     Active Substance: RITUXIMAB
     Route: 041
     Dates: start: 20220720
  5. RITUXIMAB [Suspect]
     Active Substance: RITUXIMAB
     Route: 042
     Dates: start: 20220913, end: 20220913
  6. CYCLOPHOSPHAMIDE [Suspect]
     Active Substance: CYCLOPHOSPHAMIDE
     Indication: Diffuse large B-cell lymphoma
     Route: 042
     Dates: start: 20220720
  7. CYCLOPHOSPHAMIDE [Suspect]
     Active Substance: CYCLOPHOSPHAMIDE
     Indication: Diffuse large B-cell lymphoma stage IV
     Route: 042
     Dates: start: 20220720
  8. CYCLOPHOSPHAMIDE [Suspect]
     Active Substance: CYCLOPHOSPHAMIDE
     Route: 042
     Dates: start: 20220913, end: 20220913
  9. DOXORUBICIN [Suspect]
     Active Substance: DOXORUBICIN
     Indication: Diffuse large B-cell lymphoma stage IV
     Route: 042
     Dates: start: 20220720
  10. DOXORUBICIN HYDROCHLORIDE [Suspect]
     Active Substance: DOXORUBICIN HYDROCHLORIDE
     Indication: Diffuse large B-cell lymphoma
     Route: 042
     Dates: start: 20220720
  11. DOXORUBICIN HYDROCHLORIDE [Suspect]
     Active Substance: DOXORUBICIN HYDROCHLORIDE
     Indication: Diffuse large B-cell lymphoma stage IV
     Route: 042
     Dates: start: 20220913, end: 20220913
  12. GLOFITAMAB [Suspect]
     Active Substance: GLOFITAMAB
     Indication: Diffuse large B-cell lymphoma
     Route: 042
     Dates: start: 20220830
  13. GLOFITAMAB [Suspect]
     Active Substance: GLOFITAMAB
     Indication: Diffuse large B-cell lymphoma stage IV
     Route: 042
     Dates: start: 20220906, end: 20220906
  14. GLOFITAMAB [Suspect]
     Active Substance: GLOFITAMAB
     Route: 042
     Dates: start: 20220830
  15. POLATUZUMAB VEDOTIN [Suspect]
     Active Substance: POLATUZUMAB VEDOTIN
     Indication: Diffuse large B-cell lymphoma
     Route: 042
     Dates: start: 20220720
  16. POLATUZUMAB VEDOTIN [Suspect]
     Active Substance: POLATUZUMAB VEDOTIN
     Indication: Diffuse large B-cell lymphoma stage IV
     Route: 042
  17. POLATUZUMAB VEDOTIN [Suspect]
     Active Substance: POLATUZUMAB VEDOTIN
     Route: 042
     Dates: start: 20220913, end: 20220913
  18. PREDNISONE [Suspect]
     Active Substance: PREDNISONE
     Indication: Diffuse large B-cell lymphoma
     Route: 042
     Dates: start: 20220721
  19. PREDNISONE [Suspect]
     Active Substance: PREDNISONE
     Indication: Diffuse large B-cell lymphoma stage IV
     Route: 048
     Dates: start: 20220721
  20. PREDNISONE [Suspect]
     Active Substance: PREDNISONE
     Route: 048
     Dates: start: 20220724
  21. PREDNISONE [Suspect]
     Active Substance: PREDNISONE
     Route: 048
     Dates: start: 20220917
  22. ASPIRIN [Concomitant]
     Active Substance: ASPIRIN
     Dates: start: 20220729
  23. ACYCLOVIR [Concomitant]
     Active Substance: ACYCLOVIR
     Dates: start: 20220729, end: 20220804
  24. ACYCLOVIR [Concomitant]
     Active Substance: ACYCLOVIR
     Dates: start: 20220729, end: 20220804
  25. ACYCLOVIR [Concomitant]
     Active Substance: ACYCLOVIR
     Dates: start: 20220729, end: 20230102
  26. ASPIRIN [Concomitant]
     Active Substance: ASPIRIN
     Dates: start: 2015, end: 20220727
  27. ALLOPURINOL [Concomitant]
     Active Substance: ALLOPURINOL
     Indication: Hyperuricaemia
     Route: 042
     Dates: start: 20220817, end: 20220817
  28. ALLOPURINOL [Concomitant]
     Active Substance: ALLOPURINOL
     Dates: start: 2016, end: 20220727
  29. ALLOPURINOL [Concomitant]
     Active Substance: ALLOPURINOL
     Dates: start: 20220805
  30. ALLOPURINOL [Concomitant]
     Active Substance: ALLOPURINOL
     Route: 048
     Dates: start: 20220913, end: 20220913
  31. ALLOPURINOL [Concomitant]
     Active Substance: ALLOPURINOL
     Dates: start: 20220805, end: 20220919
  32. AMIKACIN [Concomitant]
     Active Substance: AMIKACIN
     Indication: Campylobacter infection
     Dates: start: 20220922, end: 20220923
  33. ATORVASTATIN [Concomitant]
     Active Substance: ATORVASTATIN
     Indication: Hypercholesterolaemia
     Dates: start: 2022, end: 20220727
  34. ATORVASTATIN [Concomitant]
     Active Substance: ATORVASTATIN
     Dates: start: 20220805
  35. AZITHROMYCIN [Concomitant]
     Active Substance: AZITHROMYCIN
     Indication: Campylobacter infection
     Dates: start: 20220922, end: 20220926
  36. BACTRIM [Concomitant]
     Active Substance: SULFAMETHOXAZOLE\TRIMETHOPRIM
     Dates: start: 20220718, end: 20220727
  37. BEMIPARIN [Concomitant]
     Active Substance: BEMIPARIN
     Dates: start: 20220920, end: 20220921
  38. CALCIUM CARBONATE [Concomitant]
     Active Substance: CALCIUM CARBONATE
     Indication: Hypocalcaemia
     Dates: start: 20220804, end: 20220804
  39. CALCIUM CARBONATE [Concomitant]
     Active Substance: CALCIUM CARBONATE
     Dates: start: 20220823, end: 20220826
  40. CALCIUM CARBONATE [Concomitant]
     Active Substance: CALCIUM CARBONATE
     Dates: start: 20220921, end: 20220926
  41. CHOLECALCIFEROL [Concomitant]
     Active Substance: CHOLECALCIFEROL
     Indication: Hypocalcaemia
     Dates: start: 20220802, end: 20220804
  42. CIPROFLOXACIN [Concomitant]
     Active Substance: CIPROFLOXACIN
  43. COLCHICINE [Concomitant]
     Active Substance: COLCHICINE
     Indication: Hyperuricaemia
     Dates: start: 2015, end: 20220727
  44. COLCHICINE [Concomitant]
     Active Substance: COLCHICINE
     Dates: start: 20220805, end: 20220919
  45. DEXAMETHASONE [Concomitant]
     Active Substance: DEXAMETHASONE
     Route: 042
     Dates: start: 20220720, end: 20220720
  46. DEXAMETHASONE [Concomitant]
     Active Substance: DEXAMETHASONE
     Route: 042
     Dates: start: 20220817, end: 20220817
  47. DEXAMETHASONE [Concomitant]
     Active Substance: DEXAMETHASONE
     Route: 042
     Dates: start: 20220830, end: 20220830
  48. DEXAMETHASONE [Concomitant]
     Active Substance: DEXAMETHASONE
     Route: 042
     Dates: start: 20220906, end: 20220906
  49. DEXAMETHASONE [Concomitant]
     Active Substance: DEXAMETHASONE
     Route: 042
     Dates: start: 20220913, end: 20220913
  50. DEXCHLORPHENIRAMINE [Concomitant]
     Active Substance: DEXCHLORPHENIRAMINE
     Route: 042
     Dates: start: 20220720, end: 20220720
  51. DEXCHLORPHENIRAMINE [Concomitant]
     Active Substance: DEXCHLORPHENIRAMINE
     Route: 042
     Dates: start: 20220817, end: 20220817
  52. DEXCHLORPHENIRAMINE [Concomitant]
     Active Substance: DEXCHLORPHENIRAMINE
     Route: 042
     Dates: start: 20220830, end: 20220830
  53. DEXCHLORPHENIRAMINE [Concomitant]
     Active Substance: DEXCHLORPHENIRAMINE
     Route: 042
     Dates: start: 20220906, end: 20220906
  54. DEXCHLORPHENIRAMINE [Concomitant]
     Active Substance: DEXCHLORPHENIRAMINE
     Route: 042
     Dates: start: 20220913, end: 20220913
  55. DEXCHLORPHENIRAMINE [Concomitant]
     Active Substance: DEXCHLORPHENIRAMINE
     Route: 042
     Dates: start: 20220913, end: 20220913
  56. ENALAPRIL [Concomitant]
     Active Substance: ENALAPRIL
     Dates: start: 20220729, end: 20220729
  57. ENALAPRIL MALEATE [Concomitant]
     Active Substance: ENALAPRIL MALEATE
     Indication: Hypertension
     Dates: start: 2015
  58. ENALAPRIL MALEATE [Concomitant]
     Active Substance: ENALAPRIL MALEATE
     Dates: start: 20220827, end: 20220919
  59. ENALAPRIL MALEATE [Concomitant]
     Active Substance: ENALAPRIL MALEATE
     Dates: start: 20220805, end: 20220822
  60. EPOETIN ALFA [Concomitant]
     Active Substance: ERYTHROPOIETIN
     Indication: Anaemia
     Dates: start: 20220823
  61. FILGRASTIM [Concomitant]
     Active Substance: FILGRASTIM
     Indication: Neutropenia
     Dates: start: 20220824, end: 20220825
  62. FILGRASTIM [Concomitant]
     Active Substance: FILGRASTIM
     Dates: start: 20220713
  63. FILGRASTIM [Concomitant]
     Active Substance: FILGRASTIM
     Dates: start: 20220713, end: 20230127
  64. FOLIC ACID [Concomitant]
     Active Substance: FOLIC ACID
     Dates: start: 20220802, end: 20220804
  65. FOLIC ACID [Concomitant]
     Active Substance: FOLIC ACID
     Dates: start: 20220823, end: 20220826
  66. FUROSEMIDE [Concomitant]
     Active Substance: FUROSEMIDE
     Dates: start: 20220727
  67. FUROSEMIDE [Concomitant]
     Active Substance: FUROSEMIDE
     Dates: start: 20220802, end: 20220804
  68. FUROSEMIDE [Concomitant]
     Active Substance: FUROSEMIDE
     Dates: start: 20220729, end: 20220729
  69. GLUCOSALINE [Concomitant]
     Indication: Dehydration
     Dates: start: 20220920, end: 20220924
  70. HUMALOG KWIKPEN [Concomitant]
     Active Substance: INSULIN LISPRO
     Indication: Type 2 diabetes mellitus
     Dates: start: 20220823, end: 20220826
  71. HUMALOG KWIKPEN [Concomitant]
     Active Substance: INSULIN LISPRO
     Dates: start: 20220923, end: 20220926
  72. ALBUMIN HUMAN [Concomitant]
     Active Substance: ALBUMIN HUMAN
     Dates: start: 20220803, end: 20220804
  73. INSULIN GLARGINE [Concomitant]
     Active Substance: INSULIN GLARGINE
     Indication: Type 2 diabetes mellitus
     Dates: start: 20220825, end: 20220826
  74. IRON [Concomitant]
     Active Substance: IRON
     Indication: Anaemia
     Dates: start: 20220825, end: 20220826
  75. LINAGLIPTIN [Concomitant]
     Active Substance: LINAGLIPTIN
     Indication: Type 2 diabetes mellitus
     Dates: start: 20220920, end: 20220921
  76. MAGNESIUM [Concomitant]
     Active Substance: MAGNESIUM
     Indication: Hypomagnesaemia
     Dates: start: 20220810
  77. MAGNESIUM [Concomitant]
     Active Substance: MAGNESIUM
     Dates: start: 20220829, end: 20220919
  78. MAGNESIUM [Concomitant]
     Active Substance: MAGNESIUM
     Dates: start: 20220816, end: 20220828
  79. MAGNESIUM [Concomitant]
     Active Substance: MAGNESIUM
     Dates: start: 20220829
  80. MAGNESIUM CITRATE [Concomitant]
     Active Substance: MAGNESIUM CITRATE
     Indication: Hypomagnesaemia
     Dates: start: 20220801, end: 20220804
  81. MAGNESIUM CITRATE [Concomitant]
     Active Substance: MAGNESIUM CITRATE
     Indication: Nutritional supplementation
     Dates: start: 20220823, end: 20220826
  82. MAGNESIUM CITRATE [Concomitant]
     Active Substance: MAGNESIUM CITRATE
     Dates: start: 20220921, end: 20220926
  83. MAGNESIUM CITRATE [Concomitant]
     Active Substance: MAGNESIUM CITRATE
     Dates: start: 20220921, end: 20220926
  84. MAGNESIUM CITRATE [Concomitant]
     Active Substance: MAGNESIUM CITRATE
     Dates: start: 20220829, end: 20220919
  85. MAGNESIUM CITRATE [Concomitant]
     Active Substance: MAGNESIUM CITRATE
     Dates: start: 20220823, end: 20220826
  86. MAGNESIUM CITRATE [Concomitant]
     Active Substance: MAGNESIUM CITRATE
     Dates: start: 20220816, end: 20220828
  87. MAGNESIUM CITRATE [Concomitant]
     Active Substance: MAGNESIUM CITRATE
     Dates: start: 20220801, end: 20220804
  88. MAGNESIUM [Concomitant]
     Active Substance: MAGNESIUM
     Indication: Nutritional supplementation
     Dates: start: 20220823, end: 20220826
  89. MAGNESIUM [Concomitant]
     Active Substance: MAGNESIUM
     Dates: start: 20220801, end: 20220804
  90. MAGNESIUM [Concomitant]
     Active Substance: MAGNESIUM
     Dates: start: 20220816, end: 20220828
  91. MAGNESIUM [Concomitant]
     Active Substance: MAGNESIUM
     Dates: start: 20220829, end: 20220919
  92. MAGNESIUM [Concomitant]
     Active Substance: MAGNESIUM
     Dates: start: 20220921, end: 20220926
  93. METFORMIN [Concomitant]
     Active Substance: METFORMIN HYDROCHLORIDE
     Indication: Type 2 diabetes mellitus
     Route: 048
     Dates: start: 2020, end: 20220727
  94. METFORMIN [Concomitant]
     Active Substance: METFORMIN HYDROCHLORIDE
     Dates: start: 20220805, end: 20220822
  95. METFORMIN [Concomitant]
     Active Substance: METFORMIN HYDROCHLORIDE
     Route: 048
     Dates: start: 20220827, end: 20220919
  96. METOCLOPRAMIDE [Concomitant]
     Active Substance: METOCLOPRAMIDE
     Dates: start: 20220728, end: 20220728
  97. METOCLOPRAMIDE [Concomitant]
     Active Substance: METOCLOPRAMIDE
     Dates: start: 20220728, end: 20220804
  98. METOCLOPRAMIDE [Concomitant]
     Active Substance: METOCLOPRAMIDE
     Dates: start: 20220823, end: 20220826
  99. METOCLOPRAMIDE [Concomitant]
     Active Substance: METOCLOPRAMIDE
     Dates: start: 20220921, end: 20220926
  100. METRONIDAZOLE [Concomitant]
     Active Substance: METRONIDAZOLE
     Dates: start: 20220803, end: 20220804
  101. METRONIDAZOLE [Concomitant]
     Active Substance: METRONIDAZOLE
     Dates: start: 20220802, end: 20220802
  102. OMEPRAZOLE [Concomitant]
     Active Substance: OMEPRAZOLE
     Dates: start: 20220823, end: 20220826
  103. OMEPRAZOLE [Concomitant]
     Active Substance: OMEPRAZOLE
     Dates: start: 20220729, end: 20220804
  104. OMEPRAZOLE [Concomitant]
     Active Substance: OMEPRAZOLE
     Dates: start: 20220920, end: 20220926
  105. ONDANSETRON [Concomitant]
     Active Substance: ONDANSETRON
     Indication: Prophylaxis of nausea and vomiting
     Dates: start: 20220824, end: 20220826
  106. ONDANSETRON [Concomitant]
     Active Substance: ONDANSETRON
     Route: 042
     Dates: start: 20220720, end: 20220720
  107. ONDANSETRON [Concomitant]
     Active Substance: ONDANSETRON
     Dates: start: 20220728, end: 20220804
  108. ONDANSETRON [Concomitant]
     Active Substance: ONDANSETRON
     Route: 042
     Dates: start: 20220913, end: 20220913
  109. ONDANSETRON [Concomitant]
     Active Substance: ONDANSETRON
     Dates: start: 20220822
  110. ONDANSETRON [Concomitant]
     Active Substance: ONDANSETRON
     Dates: start: 20220824, end: 20231114
  111. ONDANSETRON [Concomitant]
     Active Substance: ONDANSETRON
     Dates: end: 20220822
  112. ACETAMINOPHEN [Concomitant]
     Active Substance: ACETAMINOPHEN
     Route: 042
     Dates: start: 20220720, end: 20220720
  113. ACETAMINOPHEN [Concomitant]
     Active Substance: ACETAMINOPHEN
     Dates: start: 20220728, end: 20220804
  114. ACETAMINOPHEN [Concomitant]
     Active Substance: ACETAMINOPHEN
     Route: 042
     Dates: start: 20220830, end: 20220830
  115. ACETAMINOPHEN [Concomitant]
     Active Substance: ACETAMINOPHEN
     Route: 042
     Dates: start: 20220817, end: 20220817
  116. ACETAMINOPHEN [Concomitant]
     Active Substance: ACETAMINOPHEN
     Dates: start: 20220824, end: 20220826
  117. ACETAMINOPHEN [Concomitant]
     Active Substance: ACETAMINOPHEN
     Route: 042
     Dates: start: 20220906, end: 20220906
  118. ACETAMINOPHEN [Concomitant]
     Active Substance: ACETAMINOPHEN
     Route: 042
     Dates: start: 20220913, end: 20220913
  119. ACETAMINOPHEN [Concomitant]
     Active Substance: ACETAMINOPHEN
     Dates: start: 20220920, end: 20220926
  120. ACETAMINOPHEN [Concomitant]
     Active Substance: ACETAMINOPHEN
     Dates: start: 20220913, end: 20220913
  121. PHOSPHORUS [Concomitant]
     Active Substance: PHOSPHORUS
     Dates: start: 20220810, end: 20220822
  122. PHOSPHORUS [Concomitant]
     Active Substance: PHOSPHORUS
     Dates: start: 20220827
  123. PHYTONADIONE [Concomitant]
     Active Substance: PHYTONADIONE
     Dates: start: 20220921, end: 20220924
  124. PHYTONADIONE [Concomitant]
     Active Substance: PHYTONADIONE
  125. PIPERACILLIN [Concomitant]
     Active Substance: PIPERACILLIN
     Indication: Campylobacter infection
     Dates: start: 20220729, end: 20220801
  126. PIPERACILLIN [Concomitant]
     Active Substance: PIPERACILLIN
     Dates: start: 20220728, end: 20220729
  127. PIPERACILLIN [Concomitant]
     Active Substance: PIPERACILLIN
     Dates: start: 20220920, end: 20220922
  128. POTASSIUM [Concomitant]
     Active Substance: POTASSIUM
     Indication: Hypokalaemia
     Dates: start: 20220810, end: 20220822
  129. POTASSIUM [Concomitant]
     Active Substance: POTASSIUM
     Dates: start: 20220827, end: 20220906
  130. POTASSIUM [Concomitant]
     Active Substance: POTASSIUM
     Dates: start: 20220810
  131. POTASSIUM CHLORIDE [Concomitant]
     Active Substance: POTASSIUM CHLORIDE
     Dates: start: 20220922, end: 20220926
  132. POTASSIUM CHLORIDE [Concomitant]
     Active Substance: POTASSIUM CHLORIDE
  133. REPAGLINIDE [Concomitant]
     Active Substance: REPAGLINIDE
     Indication: Type 2 diabetes mellitus
     Dates: start: 20220805, end: 20220822
  134. REPAGLINIDE [Concomitant]
     Active Substance: REPAGLINIDE
     Dates: start: 202204, end: 20220727
  135. REPAGLINIDE [Concomitant]
     Active Substance: REPAGLINIDE
     Dates: start: 20220827, end: 20220919
  136. SULFAMETHOXAZOLE [Concomitant]
     Active Substance: SULFAMETHOXAZOLE
     Dates: start: 20220729, end: 20220919
  137. TAZOBACTAM [Concomitant]
     Active Substance: TAZOBACTAM
     Indication: Campylobacter infection
     Dates: start: 20220729, end: 20220802
  138. TAZOBACTAM [Concomitant]
     Active Substance: TAZOBACTAM
     Dates: start: 20220728, end: 20220729
  139. TAZOBACTAM [Concomitant]
     Active Substance: TAZOBACTAM
     Dates: start: 20220920, end: 20220922
  140. TRIMETHOPRIM [Concomitant]
     Active Substance: TRIMETHOPRIM
     Dates: start: 20220729, end: 20220919
  141. VILDAGLIPTIN [Concomitant]
     Active Substance: VILDAGLIPTIN
     Indication: Type 2 diabetes mellitus
     Dates: start: 2020, end: 20220727
  142. VILDAGLIPTIN [Concomitant]
     Active Substance: VILDAGLIPTIN
     Dates: start: 20220805, end: 20220822
  143. VILDAGLIPTIN [Concomitant]
     Active Substance: VILDAGLIPTIN
     Dates: start: 20220827, end: 20220919
  144. ZOVIRAX [Concomitant]
     Active Substance: ACYCLOVIR
     Dates: start: 20220718, end: 20220727

REACTIONS (4)
  - Malaise [Recovered/Resolved]
  - Febrile neutropenia [Recovered/Resolved]
  - Diarrhoea [Recovered/Resolved]
  - Febrile neutropenia [Recovered/Resolved with Sequelae]

NARRATIVE: CASE EVENT DATE: 20220728
